FAERS Safety Report 22196524 (Version 1)
Quarter: 2023Q2

REPORT INFORMATION
  Report Type: Other
  Country: None (occurrence: CN)
  Receive Date: 20230411
  Receipt Date: 20230411
  Transmission Date: 20230721
  Serious: Yes (Hospitalization)
  Sender: FDA-Public Use
  Company Number: CN-Appco Pharma LLC-2140139

PATIENT
  Age: 36 Year
  Sex: Female

DRUGS (5)
  1. HYDROXYCHLOROQUINE SULFATE [Suspect]
     Active Substance: HYDROXYCHLOROQUINE SULFATE
     Indication: Antiphospholipid syndrome
     Route: 048
  2. PREDNISONE [Suspect]
     Active Substance: PREDNISONE
     Route: 048
  3. TACROLIMUS [Suspect]
     Active Substance: TACROLIMUS
     Route: 048
  4. ASPIRIN [Suspect]
     Active Substance: ASPIRIN
     Route: 048
  5. HEPARIN [Suspect]
     Active Substance: HEPARIN SODIUM
     Route: 058

REACTIONS (5)
  - Maternal exposure during pregnancy [Unknown]
  - Abdominal pain [Recovered/Resolved]
  - Blood pressure decreased [Recovered/Resolved]
  - Haemoglobin decreased [Recovered/Resolved]
  - Premature delivery [Unknown]
